FAERS Safety Report 5787155-1 (Version None)
Quarter: 2008Q2

REPORT INFORMATION
  Report Type: 
  Country: None (occurrence: None)
  Receive Date: 20080625
  Receipt Date: 20080319
  Transmission Date: 20081010
  Serious: No
  Sender: FDA-Public Use
  Company Number: US-BAUSCH-2008BL001237

PATIENT
  Age: 72 Year
  Sex: Male

DRUGS (12)
  1. ALAWAY [Suspect]
     Indication: EYE PRURITUS
     Route: 047
     Dates: start: 20080318, end: 20080318
  2. XALATAN /SWE/ [Concomitant]
     Indication: GLAUCOMA
     Route: 047
  3. INSULIN [Concomitant]
     Indication: DIABETES MELLITUS
     Route: 058
  4. ALDACTONE /USA/ [Concomitant]
     Indication: HYPERALDOSTERONISM
     Route: 048
  5. PLAVIX [Concomitant]
     Indication: ANTICOAGULANT THERAPY
     Route: 048
  6. ASPIRIN [Concomitant]
     Indication: ANTICOAGULANT THERAPY
     Route: 048
  7. COZAAR [Concomitant]
     Indication: HYPERTENSION
     Route: 048
  8. LIPITOR [Concomitant]
     Indication: BLOOD CHOLESTEROL INCREASED
     Route: 048
  9. LASIX - SLOW RELEASE [Concomitant]
     Route: 048
  10. AVODART /USA/ [Concomitant]
     Route: 048
  11. FERROUS FUMARATE [Concomitant]
     Indication: MINERAL SUPPLEMENTATION
     Route: 048
  12. CENTRUM SILVER [Concomitant]
     Indication: VITAMIN SUPPLEMENTATION
     Route: 048

REACTIONS (1)
  - LACRIMATION INCREASED [None]
